FAERS Safety Report 6810786-4 (Version None)
Quarter: 2010Q2

REPORT INFORMATION
  Report Type: 
  Country: None (occurrence: None)
  Receive Date: 20100630
  Receipt Date: 20080325
  Transmission Date: 20101027
  Serious: No
  Sender: FDA-Public Use
  Company Number: US-PFIZER INC-2007094241

PATIENT
  Sex: Female

DRUGS (2)
  1. ESTRING [Suspect]
     Indication: VULVOVAGINAL DRYNESS
  2. ESTRING [Suspect]
     Indication: DYSPAREUNIA

REACTIONS (1)
  - VAGINAL HAEMORRHAGE [None]
